FAERS Safety Report 9108980 (Version 2)
Quarter: 2014Q2

REPORT INFORMATION
  Report Type: Spontaneous
  Country: JP (occurrence: JP)
  Receive Date: 20130222
  Receipt Date: 20140407
  Transmission Date: 20141212
  Serious: Yes (Death, Hospitalization, Other)
  Sender: FDA-Public Use
  Company Number: JP-009507513-1302JPN008419

PATIENT
  Age: 43 Year
  Sex: Female
  Weight: 47 kg

DRUGS (15)
  1. TEMODAL [Suspect]
     Indication: ANAPLASTIC ASTROCYTOMA
     Dosage: 150 MG/M2, QD
     Route: 048
     Dates: start: 20120331, end: 20120404
  2. TEMODAL [Suspect]
     Dosage: 75 MG/SQM
     Route: 048
     Dates: start: 20110629, end: 20110810
  3. TEMODAL [Suspect]
     Dosage: 150 MG/M2, QD
     Route: 048
     Dates: start: 20111021, end: 20111025
  4. TEMODAL [Suspect]
     Dosage: 150 MG/M2, QD
     Route: 048
     Dates: start: 20111222, end: 20111226
  5. TEMODAL [Suspect]
     Dosage: 150 MG/M2, QD
     Route: 048
     Dates: start: 20111123, end: 20111127
  6. TEMODAL [Suspect]
     Dosage: 150 MG/M2, QD
     Route: 048
     Dates: start: 20120218, end: 20120222
  7. LYRICA [Suspect]
     Dosage: DAILY DOSAGE UNKNOWN
     Route: 048
     Dates: start: 20110722, end: 20110808
  8. LANDSEN [Concomitant]
     Indication: PROPHYLAXIS
     Dosage: DAILY DOSAGE UNKNOWN
     Route: 048
  9. DEPAKENE [Concomitant]
     Indication: PROPHYLAXIS
     Dosage: UNK
     Route: 048
  10. BAKTAR [Concomitant]
     Indication: ANTIFUNGAL PROPHYLAXIS
     Dosage: UNK
     Route: 048
     Dates: start: 20110629
  11. LANZOPRAZOL [Concomitant]
     Indication: PROPHYLAXIS
     Route: 048
  12. CELECOX [Concomitant]
     Route: 048
  13. PREDNISOLONE [Concomitant]
     Indication: PROPHYLAXIS
     Dosage: UNK
     Route: 048
  14. NAVOBAN [Concomitant]
     Indication: PROPHYLAXIS
     Dosage: DAILLY DOSAGE UNKNOWN, AT THE ADMINISTRATION OF THE DRUG
     Route: 048
     Dates: start: 20110629
  15. MAGMITT [Concomitant]
     Indication: PROPHYLAXIS
     Dosage: UNK
     Route: 048
     Dates: start: 20110629

REACTIONS (5)
  - Disease progression [Fatal]
  - Vomiting [Recovering/Resolving]
  - Nausea [Recovering/Resolving]
  - Bone marrow failure [Recovering/Resolving]
  - Rash [Recovered/Resolved]
